FAERS Safety Report 6160881-0 (Version None)
Quarter: 2009Q2

REPORT INFORMATION
  Report Type: 
  Country: None (occurrence: None)
  Receive Date: 20090420
  Receipt Date: 20090406
  Transmission Date: 20091009
  Serious: Yes (Hospitalization)
  Sender: FDA-Public Use
  Company Number: JP-PFIZER INC-2009199595

PATIENT

DRUGS (9)
  1. MIGLITOL [Suspect]
     Indication: DIABETES MELLITUS
     Dosage: 75 MG, UNK
     Route: 048
  2. GLIMICRON [Suspect]
     Route: 048
  3. CONIEL [Concomitant]
     Route: 048
  4. LIVALO [Concomitant]
     Route: 048
  5. URINORM [Concomitant]
     Route: 048
  6. SYMMETREL [Concomitant]
     Route: 048
  7. KREMEZIN [Concomitant]
     Route: 048
  8. FLUVOXAMINE MALEATE [Concomitant]
     Route: 048
  9. PURSENNID [Concomitant]
     Route: 048

REACTIONS (1)
  - HYPOGLYCAEMIC UNCONSCIOUSNESS [None]
